FAERS Safety Report 23180392 (Version 1)
Quarter: 2023Q4

REPORT INFORMATION
  Report Type: Report from Study
  Country: KR (occurrence: KR)
  Receive Date: 20231114
  Receipt Date: 20231114
  Transmission Date: 20240109
  Serious: Yes (Hospitalization, Other)
  Sender: FDA-Public Use
  Company Number: KR-GLAXOSMITHKLINE-KR2023GSK156039

PATIENT

DRUGS (18)
  1. BELIMUMAB [Suspect]
     Active Substance: BELIMUMAB
     Indication: Systemic lupus erythematosus
     Dosage: 600 MG
     Route: 042
     Dates: start: 20230131
  2. BELIMUMAB [Suspect]
     Active Substance: BELIMUMAB
     Dosage: 616 MG
     Route: 042
     Dates: start: 20230216, end: 20230720
  3. BELIMUMAB [Suspect]
     Active Substance: BELIMUMAB
     Dosage: 628 MG
     Route: 042
     Dates: start: 20230817
  4. PREDNISOLONE [Concomitant]
     Active Substance: PREDNISOLONE
     Indication: Product used for unknown indication
     Dosage: 15 MG, QD
     Route: 048
     Dates: start: 20230216
  5. CIPOL-N [Concomitant]
     Indication: Product used for unknown indication
     Dosage: 50 MG, BID
     Route: 048
     Dates: start: 20221205
  6. CELEPRO CAPSULE [Concomitant]
     Indication: Back pain
     Dosage: 200 MG, QD
     Route: 048
     Dates: start: 20230927
  7. MYCAL-D TABLET [Concomitant]
     Indication: Osteopenia
     Dosage: 1 DF, QD
     Route: 048
     Dates: start: 20220725
  8. RAPICET SEMI [Concomitant]
     Indication: Back pain
     Dosage: 1 DF, BID
     Route: 048
     Dates: start: 20230628
  9. BIOTOP CAPSULE [Concomitant]
     Indication: Abdominal pain lower
     Dosage: 1 DF, BID
     Route: 048
     Dates: start: 20231031
  10. BIOTOP CAPSULE [Concomitant]
     Indication: Lupus enteritis
     Dosage: 1 DF, BID
     Route: 048
     Dates: start: 20221216
  11. LOTEPRO [Concomitant]
     Indication: Prophylaxis
     Dosage: 2 DF, QID
     Dates: start: 20230802
  12. LEVOFLOXACIN [Concomitant]
     Active Substance: LEVOFLOXACIN
     Indication: Prophylaxis
     Dosage: 2 DF, QID
     Dates: start: 20230730
  13. HYGROTON [Concomitant]
     Active Substance: CHLORTHALIDONE
     Indication: Hypertension
     Dosage: 25 MG, QD
     Route: 048
     Dates: start: 20230529
  14. TELMISARTAN [Concomitant]
     Active Substance: TELMISARTAN
     Indication: Hypertension
     Dosage: 80 MG, QD
     Route: 048
     Dates: start: 20230529
  15. NITROGLYCERIN SLOVAKOFARMA [Concomitant]
     Indication: Myocardial ischaemia
     Dosage: 0.6 MG, QD
     Route: 048
     Dates: start: 20210124
  16. NEBIVOLOL [Concomitant]
     Active Substance: NEBIVOLOL
     Indication: Hypertension
     Dosage: 5 MG, QD
     Route: 048
     Dates: start: 20220124
  17. PLAVITOR [Concomitant]
     Indication: Myocardial ischaemia
     Dosage: 75 MG, QD
     Route: 048
     Dates: start: 20210122
  18. FEROBA-YOU SR [Concomitant]
     Indication: Anaemia
     Dosage: 1 DF, QD
     Route: 048
     Dates: start: 20210122

REACTIONS (1)
  - Colitis [Recovered/Resolved]

NARRATIVE: CASE EVENT DATE: 20231106
